FAERS Safety Report 15718686 (Version 1)
Quarter: 2018Q4

REPORT INFORMATION
  Report Type: Spontaneous
  Country: CN (occurrence: CN)
  Receive Date: 20181213
  Receipt Date: 20181213
  Transmission Date: 20190205
  Serious: Yes (Other)
  Sender: FDA-Public Use
  Company Number: CN-GLAXOSMITHKLINE-CN2018GSK222195

PATIENT
  Age: 1 Month
  Sex: Male
  Weight: 5.5 kg

DRUGS (2)
  1. AMOXICILLIN. [Concomitant]
     Active Substance: AMOXICILLIN
     Indication: ANAL ABSCESS
     Dosage: UNK
  2. BACTROBAN [Suspect]
     Active Substance: MUPIROCIN\MUPIROCIN CALCIUM
     Indication: ANAL ABSCESS
     Dosage: 0.1 G, TID
     Route: 061
     Dates: start: 20181008, end: 20181017

REACTIONS (2)
  - Erythema induratum [Unknown]
  - Flushing [Recovering/Resolving]

NARRATIVE: CASE EVENT DATE: 20181016
